FAERS Safety Report 8950643 (Version 1)
Quarter: 2012Q4

REPORT INFORMATION
  Report Type: 
  Country: CH (occurrence: CH)
  Receive Date: 20121207
  Receipt Date: 20121207
  Transmission Date: 20130627
  Serious: Yes (Other)
  Sender: FDA-Public Use
  Company Number: CH-JNJFOC-20121200433

PATIENT
  Sex: Female

DRUGS (2)
  1. REGAINE [Suspect]
     Route: 065
  2. REGAINE [Suspect]
     Indication: PRODUCT USED FOR UNKNOWN INDICATION
     Route: 065

REACTIONS (2)
  - Rash vesicular [Unknown]
  - Excoriation [Unknown]
